FAERS Safety Report 9183030 (Version 1)
Quarter: 2013Q1

REPORT INFORMATION
  Report Type: Spontaneous
  Country: US (occurrence: US)
  Receive Date: 20130322
  Receipt Date: 20130322
  Transmission Date: 20140127
  Serious: Yes (Other)
  Sender: FDA-Public Use
  Company Number: US-BRISTOL-MYERS SQUIBB COMPANY-17012642

PATIENT
  Sex: Male

DRUGS (2)
  1. ERBITUX [Suspect]
     Indication: COLORECTAL CANCER METASTATIC
  2. BENADRYL [Concomitant]
     Indication: PREMEDICATION

REACTIONS (5)
  - Flushing [Unknown]
  - Pruritus [Unknown]
  - Erythema [Unknown]
  - Wheezing [Unknown]
  - Vomiting [Unknown]
